FAERS Safety Report 4933680-2 (Version None)
Quarter: 2006Q1

REPORT INFORMATION
  Report Type: 
  Country: None (occurrence: None)
  Receive Date: 20060117
  Receipt Date: 20050922
  Transmission Date: 20060701
  Serious: Yes (Hospitalization, Disabling, Other)
  Sender: FDA-Public Use
  Company Number: 2005108112

PATIENT
  Age: 87 Year
  Sex: Female

DRUGS (6)
  1. MACUGEN [Suspect]
     Indication: MACULAR DEGENERATION
     Dosage: (1 IN 6 WK), INTRAVITREOUS
     Dates: start: 20050401
  2. ZOCOR [Concomitant]
  3. HYDROCHLOROTHIAZIDE [Concomitant]
  4. ASPIRIN [Concomitant]
  5. NEURONTIN [Concomitant]
  6. NEXIUM [Concomitant]

REACTIONS (1)
  - ENDOPHTHALMITIS [None]
